FAERS Safety Report 11109158 (Version 3)
Quarter: 2015Q3

REPORT INFORMATION
  Report Type: Spontaneous
  Country: US (occurrence: None)
  Receive Date: 20150511
  Receipt Date: 20150706
  Transmission Date: 20151125
  Serious: Yes (Hospitalization)
  Sender: FDA-Public Use
  Company Number: T-2015-232

PATIENT
  Age: 20 Year
  Sex: Female

DRUGS (6)
  1. LEVETIRACETAM. [Concomitant]
     Active Substance: LEVETIRACETAM
  2. MAGNESIUM [Concomitant]
     Active Substance: MAGNESIUM
  3. PYRIDOXINE [Concomitant]
     Active Substance: PYRIDOXINE
  4. CYSTADANE [Suspect]
     Active Substance: BETAINE
     Indication: METHYLENETETRAHYDROFOLATE REDUCTASE DEFICIENCY
  5. LEUCOVORIN. [Concomitant]
     Active Substance: LEUCOVORIN
  6. RIBOFLACIN [Concomitant]

REACTIONS (3)
  - Joint injury [None]
  - Fall [None]
  - Seizure [None]

NARRATIVE: CASE EVENT DATE: 20150420
